FAERS Safety Report 12640374 (Version 1)
Quarter: 2016Q3

REPORT INFORMATION
  Report Type: Report from Study
  Country: GB (occurrence: GB)
  Receive Date: 20160810
  Receipt Date: 20160810
  Transmission Date: 20161109
  Serious: Yes (Death, Hospitalization, Other)
  Sender: FDA-Public Use
  Company Number: GB-ASTELLAS-2009003209

PATIENT
  Age: 62 Year
  Sex: Male

DRUGS (6)
  1. DICLOFENAC [Concomitant]
     Active Substance: DICLOFENAC
     Indication: SCIATICA
     Dosage: UNK, UNKNOWN FREQ.
     Route: 048
     Dates: start: 20091007
  2. PLACEBO [Suspect]
     Active Substance: UNSPECIFIED INGREDIENT
     Indication: METASTASES TO CENTRAL NERVOUS SYSTEM
  3. LANSOPRAZOLE. [Concomitant]
     Active Substance: LANSOPRAZOLE
     Indication: PROPHYLAXIS AGAINST GASTROINTESTINAL ULCER
     Dosage: UNK, UNKNOWN FREQ.
     Route: 048
     Dates: start: 20091007
  4. NYSTATIN. [Concomitant]
     Active Substance: NYSTATIN
     Indication: CANDIDA INFECTION
     Dosage: UNK, UNKNOWN FREQ.
     Route: 061
     Dates: start: 20090921, end: 20090928
  5. PLACEBO [Suspect]
     Active Substance: UNSPECIFIED INGREDIENT
     Indication: NON-SMALL CELL LUNG CANCER
     Dosage: 1 DF, ONCE DAILY (LAST DOSE PRIOR TO SAE: 29 OCTOBER 2009)
     Route: 048
     Dates: start: 20090824, end: 20091029
  6. COCODAMOL [Concomitant]
     Active Substance: ACETAMINOPHEN\CODEINE PHOSPHATE
     Indication: SCIATICA
     Dosage: UNK UNK, UNKNOWN FREQ.
     Route: 048
     Dates: start: 20091007

REACTIONS (3)
  - Urinary retention [Recovered/Resolved]
  - Malignant neoplasm progression [Fatal]
  - Back pain [Recovered/Resolved]

NARRATIVE: CASE EVENT DATE: 20091011
